FAERS Safety Report 4429101-9 (Version None)
Quarter: 2004Q3

REPORT INFORMATION
  Report Type: 
  Country: None (occurrence: None)
  Receive Date: 20040726
  Receipt Date: 20040329
  Transmission Date: 20050211
  Serious: No
  Sender: FDA-Public Use
  Company Number: USA040258724

PATIENT
  Age: 88 Year
  Sex: Female

DRUGS (10)
  1. FORTEO [Suspect]
     Indication: OSTEOPOROSIS
     Dates: start: 20040101, end: 20040301
  2. SYNTHROID [Concomitant]
  3. LIPITOR [Concomitant]
  4. DETROL [Concomitant]
  5. LASIX [Concomitant]
  6. CALCIUM PLUS D [Concomitant]
  7. GLUCOSAMINE CHONDROITIN [Concomitant]
  8. VITAMIN C [Concomitant]
  9. MULTI-VITAMIN [Concomitant]
  10. FOSAMAX [Concomitant]

REACTIONS (6)
  - FATIGUE [None]
  - FEELING ABNORMAL [None]
  - MUSCLE CRAMP [None]
  - NAUSEA [None]
  - PAIN IN EXTREMITY [None]
  - PARAESTHESIA [None]
